FAERS Safety Report 11059242 (Version 1)
Quarter: 2015Q2

REPORT INFORMATION
  Report Type: Spontaneous
  Country: US (occurrence: None)
  Receive Date: 20150420
  Receipt Date: 20150420
  Transmission Date: 20150821
  Serious: No
  Sender: FDA-Public Use
  Company Number: AEGR001230

PATIENT
  Age: 64 Year
  Sex: Male
  Weight: 76.6 kg

DRUGS (3)
  1. JUXTAPID [Suspect]
     Active Substance: LOMITAPIDE MESYLATE
     Indication: PRODUCT USED FOR UNKNOWN INDICATION
     Route: 048
     Dates: start: 20150302
  2. JUXTAPID [Suspect]
     Active Substance: LOMITAPIDE MESYLATE
     Indication: TYPE IIA HYPERLIPIDAEMIA
     Route: 048
     Dates: start: 20150302
  3. FISH OIL(FISH OIL) CAPSULE [Suspect]
     Active Substance: FISH OIL

REACTIONS (1)
  - Malaise [None]

NARRATIVE: CASE EVENT DATE: 201503
